FAERS Safety Report 4312647-1 (Version None)
Quarter: 2004Q1

REPORT INFORMATION
  Report Type: 
  Country: None (occurrence: None)
  Receive Date: 20040302
  Receipt Date: 20031219
  Transmission Date: 20041129
  Serious: Yes (Other)
  Sender: FDA-Public Use
  Company Number: 200330744BWH

PATIENT
  Age: 65 Year
  Sex: Male

DRUGS (4)
  1. LEVITRA [Suspect]
     Indication: ERECTILE DYSFUNCTION
     Dosage: 10 MG ONCE ORAL
     Route: 048
     Dates: start: 20031217
  2. HYDROCHLOROTHIAZIDE [Concomitant]
  3. ZOCOR [Concomitant]
  4. ATENOLOL [Concomitant]

REACTIONS (2)
  - BLOOD PRESSURE DECREASED [None]
  - PAIN IN EXTREMITY [None]
